FAERS Safety Report 10761787 (Version 3)
Quarter: 2015Q3

REPORT INFORMATION
  Report Type: Spontaneous
  Country: TW (occurrence: TW)
  Receive Date: 20150204
  Receipt Date: 20150911
  Transmission Date: 20151125
  Serious: Yes (Death, Hospitalization)
  Sender: FDA-Public Use
  Company Number: TW-JNJFOC-20150117201

PATIENT
  Age: 70 Year
  Sex: Male
  Weight: 59 kg

DRUGS (7)
  1. SULTAMICILLIN [Concomitant]
     Active Substance: SULTAMICILLIN
     Route: 065
  2. AMBROXOL [Concomitant]
     Active Substance: AMBROXOL
     Indication: INCREASED BRONCHIAL SECRETION
     Route: 048
  3. CELECOXIB. [Concomitant]
     Active Substance: CELECOXIB
     Route: 065
  4. ZYTIGA [Suspect]
     Active Substance: ABIRATERONE ACETATE
     Indication: PROSTATE CANCER METASTATIC
     Route: 048
     Dates: start: 20140801
  5. TAMSULOSIN [Concomitant]
     Active Substance: TAMSULOSIN
     Indication: BENIGN PROSTATIC HYPERPLASIA
     Dosage: AT BED TIME
     Route: 048
  6. UNASYN [Concomitant]
     Active Substance: AMPICILLIN SODIUM\SULBACTAM SODIUM
     Route: 065
  7. STROCAIN [Concomitant]
     Active Substance: OXETHAZAINE
     Route: 065

REACTIONS (4)
  - Hospitalisation [Recovered/Resolved]
  - Cardiac failure [Fatal]
  - Pleural effusion [Unknown]
  - Pneumonia [Unknown]
